FAERS Safety Report 6932848-3 (Version None)
Quarter: 2010Q3

REPORT INFORMATION
  Report Type: 
  Country: None (occurrence: None)
  Receive Date: 20100819
  Receipt Date: 20100806
  Transmission Date: 20110219
  Serious: Yes (Hospitalization)
  Sender: FDA-Public Use
  Company Number: US-WATSON-2010-10663

PATIENT
  Age: 40 Year
  Sex: Male
  Weight: 124.71 kg

DRUGS (2)
  1. ANDRODERM [Suspect]
     Indication: BLOOD TESTOSTERONE DECREASED
     Dosage: 1 PATCH, Q24H
     Route: 062
     Dates: start: 20100719
  2. ANDRODERM [Suspect]
     Dosage: 1 PATCH, Q24H
     Route: 062
     Dates: start: 20100201, end: 20100719

REACTIONS (3)
  - CHROMATURIA [None]
  - MENISCUS LESION [None]
  - URINE ODOUR ABNORMAL [None]
